FAERS Safety Report 24381589 (Version 1)
Quarter: 2024Q4

REPORT INFORMATION
  Report Type: Spontaneous
  Country: PH (occurrence: PH)
  Receive Date: 20241001
  Receipt Date: 20241001
  Transmission Date: 20250115
  Serious: Yes (Other)
  Sender: ASTELLAS
  Company Number: PH-ASTELLAS-2024-AER-008523

PATIENT
  Age: 74 Year
  Sex: Male

DRUGS (1)
  1. TACROLIMUS [Suspect]
     Active Substance: TACROLIMUS
     Indication: Liver transplant
     Route: 065

REACTIONS (7)
  - Histoplasmosis disseminated [Unknown]
  - Acute pulmonary histoplasmosis [Unknown]
  - Empyema [Unknown]
  - Acute respiratory failure [Unknown]
  - Pleural effusion [Unknown]
  - Pericardial effusion [Unknown]
  - Lymphadenopathy mediastinal [Unknown]
